FAERS Safety Report 15675687 (Version 1)
Quarter: 2018Q4

REPORT INFORMATION
  Report Type: Spontaneous
  Country: US (occurrence: US)
  Receive Date: 20181130
  Receipt Date: 20181130
  Transmission Date: 20190205
  Serious: Yes (Hospitalization)
  Sender: FDA-Public Use
  Company Number: US-LPDUSPRD-20182233

PATIENT
  Age: 1 Day
  Sex: Male
  Weight: 3.84 kg

DRUGS (1)
  1. METHYLERGONOVINE MALEATE INJECTION, USP (0740-20) [Suspect]
     Active Substance: METHYLERGONOVINE MALEATE
     Dosage: 0.2 MG (0.2 MG/ML)
     Route: 030

REACTIONS (7)
  - Hypertension neonatal [Recovered/Resolved]
  - Wrong product administered [Unknown]
  - Blood lactic acid increased [Recovered/Resolved]
  - Product administered to patient of inappropriate age [Unknown]
  - Neonatal respiratory depression [Recovered/Resolved]
  - Neonatal hyponatraemia [Recovered/Resolved]
  - Neonatal respiratory acidosis [Recovered/Resolved]
